FAERS Safety Report 23687634 (Version 1)
Quarter: 2024Q1

REPORT INFORMATION
  Report Type: Spontaneous
  Country: IT (occurrence: IT)
  Receive Date: 20240329
  Receipt Date: 20240329
  Transmission Date: 20240410
  Serious: Yes (Life-Threatening, Other)
  Sender: FDA-Public Use
  Company Number: IT-PFIZER INC-202400071880

PATIENT
  Age: 40 Year
  Sex: Male

DRUGS (7)
  1. AVIBACTAM SODIUM [Suspect]
     Active Substance: AVIBACTAM SODIUM
     Indication: Klebsiella infection
     Dosage: UNK
     Route: 065
     Dates: start: 20221031, end: 20221115
  2. AVIBACTAM SODIUM [Suspect]
     Active Substance: AVIBACTAM SODIUM
     Indication: Klebsiella infection
     Dosage: TIME INTERVAL: 0.33333333 DAYS: 2.5 G, 3X/DAY (MAINTENANCE DOSE)
     Route: 065
     Dates: start: 2022, end: 2022
  3. AVIBACTAM SODIUM [Suspect]
     Active Substance: AVIBACTAM SODIUM
     Indication: Klebsiella infection
     Dosage: 2.5 G (LOADING DOSE)
     Route: 065
     Dates: start: 2022, end: 2022
  4. FOSFOMYCIN [Concomitant]
     Active Substance: FOSFOMYCIN
     Indication: Klebsiella infection
     Dosage: 6 G (LOADING DOSE)
     Route: 042
     Dates: start: 20221031
  5. FOSFOMYCIN [Concomitant]
     Active Substance: FOSFOMYCIN
     Indication: Klebsiella infection
     Dosage: 16 G, DAILY
     Route: 042
     Dates: start: 2022, end: 20230121
  6. CEFIDEROCOL [Suspect]
     Active Substance: CEFIDEROCOL
     Indication: Klebsiella infection
     Dosage: 2 G (LOADING DOSE)
     Route: 065
     Dates: start: 2023
  7. CEFIDEROCOL [Suspect]
     Active Substance: CEFIDEROCOL
     Indication: Klebsiella infection
     Dosage: TIME INTERVAL: 0.33333333 DAYS: 2 G, 3X/DAY (OVER 8-H INFUSION) (CONTINUOUS INFUSION)
     Route: 065
     Dates: start: 202301, end: 20230121

REACTIONS (1)
  - Drug resistance [Unknown]
